FAERS Safety Report 20704908 (Version 1)
Quarter: 2022Q2

REPORT INFORMATION
  Report Type: Spontaneous
  Country: US (occurrence: US)
  Receive Date: 20220413
  Receipt Date: 20220413
  Transmission Date: 20220720
  Serious: Yes (Hospitalization, Disabling, Other)
  Sender: FDA-Public Use
  Company Number: US-PFIZER INC-202200494612

PATIENT
  Age: 41 Year
  Sex: Female

DRUGS (1)
  1. XELJANZ [Suspect]
     Active Substance: TOFACITINIB CITRATE
     Dosage: UNK

REACTIONS (20)
  - Small intestinal obstruction [Unknown]
  - Abdominal abscess [Unknown]
  - Polyarthritis [Unknown]
  - Gastrointestinal anastomotic leak [Unknown]
  - Intestinal obstruction [Unknown]
  - Rectal discharge [Unknown]
  - Arthritis [Unknown]
  - Gait disturbance [Unknown]
  - Dysstasia [Unknown]
  - Sleep deficit [Unknown]
  - Fatigue [Unknown]
  - Abdominal adhesions [Unknown]
  - Anal incontinence [Unknown]
  - Anal fistula [Unknown]
  - Gastrointestinal disorder [Unknown]
  - Frequent bowel movements [Unknown]
  - Incontinence [Unknown]
  - Skin lesion [Unknown]
  - Fistula [Unknown]
  - Adhesiolysis [Unknown]

NARRATIVE: CASE EVENT DATE: 20200501
